FAERS Safety Report 16434120 (Version 4)
Quarter: 2019Q3

REPORT INFORMATION
  Report Type: Spontaneous
  Country: US (occurrence: US)
  Receive Date: 20190614
  Receipt Date: 20190710
  Transmission Date: 20191004
  Serious: No
  Sender: FDA-Public Use
  Company Number: US-JNJFOC-20190609789

PATIENT
  Sex: Male

DRUGS (1)
  1. INVOKANA [Suspect]
     Active Substance: CANAGLIFLOZIN
     Indication: PRODUCT USED FOR UNKNOWN INDICATION
     Route: 048

REACTIONS (7)
  - Hypertension [Not Recovered/Not Resolved]
  - Nausea [Unknown]
  - Panic attack [Unknown]
  - Product dose omission [Unknown]
  - Adverse drug reaction [Unknown]
  - Dizziness [Unknown]
  - Sluggishness [Unknown]
